FAERS Safety Report 6539103-4 (Version None)
Quarter: 2010Q1

REPORT INFORMATION
  Report Type: 
  Country: None (occurrence: None)
  Receive Date: 20100115
  Receipt Date: 20100111
  Transmission Date: 20100710
  Serious: Yes (Death)
  Sender: FDA-Public Use
  Company Number: PHHY2009BR43301

PATIENT
  Sex: Female

DRUGS (7)
  1. EXELON [Suspect]
     Indication: DEMENTIA ALZHEIMER'S TYPE
     Dosage: 4 MG AFTER THE BREAKFAST AND 4 MG AFTER THE DINNER, WHICH WAS ADMINISTERED WITH A SYRINGE
     Dates: start: 20070101
  2. DIOVAN HCT [Suspect]
     Indication: CARDIAC DISORDER
     Dosage: 1 TABLET (160/25 MG) A DAY  IN THE MORNING
     Route: 048
  3. AMLODIPINE BESYLATE [Concomitant]
     Dosage: 5 MG, QHS
     Route: 048
  4. CRESTOR [Concomitant]
     Dosage: 10 MG, QHS
     Route: 048
  5. BUFFERIN [Concomitant]
     Dosage: 1 DF, QHS
     Route: 048
  6. SELOZOK [Concomitant]
     Dosage: 1 TABLET IN THE MORNING
     Route: 048
  7. MEMANTINE HCL [Concomitant]
     Dosage: 1 TABLET IN THE MORNING AND 1 TABLET IN THE AFTERNOON
     Route: 048

REACTIONS (1)
  - ACUTE MYOCARDIAL INFARCTION [None]
